FAERS Safety Report 9302088 (Version 1)
Quarter: 2013Q2

REPORT INFORMATION
  Report Type: Spontaneous
  Country: BE (occurrence: BE)
  Receive Date: 20130521
  Receipt Date: 20130521
  Transmission Date: 20140414
  Serious: Yes (Life-Threatening)
  Sender: FDA-Public Use
  Company Number: BE-B.I. PHARMACEUTICALS,INC./RIDGEFIELD-2013-BL-00060BL

PATIENT
  Age: 87 Year
  Sex: Female
  Weight: 90 kg

DRUGS (6)
  1. PRADAXA [Suspect]
     Indication: ATRIAL FIBRILLATION
     Dosage: 220 MG
     Route: 048
     Dates: start: 20121120, end: 20121204
  2. MOXONIDINE [Concomitant]
     Dosage: 0.2 MG
     Route: 048
  3. LIPITOR [Concomitant]
     Dosage: 20 MG
     Route: 048
  4. LOSARTAN [Concomitant]
     Dosage: 50 NR
     Route: 048
  5. L-THYROXINE [Concomitant]
     Dosage: 75 MCG
     Route: 048
  6. PARACETAMOL [Concomitant]
     Dosage: 3 G
     Route: 048

REACTIONS (1)
  - Renal failure acute [Recovered/Resolved]
